FAERS Safety Report 24044420 (Version 2)
Quarter: 2024Q3

REPORT INFORMATION
  Report Type: Report from Study
  Country: US (occurrence: None)
  Receive Date: 20240703
  Receipt Date: 20240806
  Transmission Date: 20241016
  Serious: Yes (Other)
  Sender: ASTRAZENECA
  Company Number: 2024A146678

PATIENT
  Age: 66 Year
  Sex: Female

DRUGS (5)
  1. BREZTRI [Suspect]
     Active Substance: BUDESONIDE\FORMOTEROL\GLYCOPYRROLATE
     Indication: Chronic obstructive pulmonary disease
     Dosage: UNKNOWN
     Route: 055
  2. BREZTRI [Suspect]
     Active Substance: BUDESONIDE\FORMOTEROL\GLYCOPYRROLATE
     Indication: Chronic obstructive pulmonary disease
     Dosage: 160MCG/9MCG UNKNOWN
     Route: 055
     Dates: start: 202303
  3. PFIZER [Concomitant]
     Indication: COVID-19
     Dates: start: 202107
  4. PFIZER [Concomitant]
     Indication: COVID-19
     Dates: start: 20210330
  5. PFIZER [Concomitant]
     Indication: COVID-19
     Dates: start: 20230925

REACTIONS (2)
  - Lung neoplasm malignant [Unknown]
  - Product dose omission issue [Unknown]
